FAERS Safety Report 9385771 (Version 2)
Quarter: 2014Q1

REPORT INFORMATION
  Report Type: Spontaneous
  Country: US (occurrence: US)
  Receive Date: 20130705
  Receipt Date: 20140213
  Transmission Date: 20141002
  Serious: Yes (Other)
  Sender: FDA-Public Use
  Company Number: US-BAYER-2013-081649

PATIENT
  Age: 18 Year
  Sex: Female

DRUGS (6)
  1. YAZ [Suspect]
     Dosage: UNK
     Dates: start: 201105
  2. YASMIN [Suspect]
     Dosage: UNK
     Dates: start: 201105
  3. GIANVI [Suspect]
     Dosage: UNK
     Dates: start: 201105
  4. OCELLA [Suspect]
     Dosage: UNK
     Dates: start: 201105
  5. DIFFERIN [Concomitant]
     Dosage: UNK
     Dates: start: 20110731
  6. PHENOXYMETHYLPENICILLIN [Concomitant]
     Dosage: UNK
     Dates: start: 20110731

REACTIONS (8)
  - Retinal exudates [None]
  - General physical health deterioration [None]
  - Pain [None]
  - Injury [None]
  - Emotional distress [None]
  - Anxiety [None]
  - Anhedonia [None]
  - Pain [None]
